FAERS Safety Report 16344054 (Version 2)
Quarter: 2019Q3

REPORT INFORMATION
  Report Type: Spontaneous
  Country: EE (occurrence: EE)
  Receive Date: 20190522
  Receipt Date: 20190923
  Transmission Date: 20191004
  Serious: No
  Sender: FDA-Public Use
  Company Number: EE-VIIV HEALTHCARE LIMITED-EE2019GSK062212

PATIENT
  Age: 26 Year
  Sex: Female

DRUGS (1)
  1. TRIUMEQ [Suspect]
     Active Substance: ABACAVIR SULFATE\DOLUTEGRAVIR SODIUM\LAMIVUDINE
     Indication: PRODUCT USED FOR UNKNOWN INDICATION
     Dosage: UNK
     Dates: start: 201807

REACTIONS (3)
  - Ill-defined disorder [Unknown]
  - Abortion induced [Unknown]
  - Exposure during pregnancy [Not Recovered/Not Resolved]
